FAERS Safety Report 6908384-7 (Version None)
Quarter: 2010Q3

REPORT INFORMATION
  Report Type: 
  Country: None (occurrence: None)
  Receive Date: 20100805
  Receipt Date: 20100722
  Transmission Date: 20110219
  Serious: Yes (Hospitalization)
  Sender: FDA-Public Use
  Company Number: GB-MEDIMMUNE-MEDI-0011450

PATIENT
  Sex: Female

DRUGS (2)
  1. SYNAGIS [Suspect]
  2. OXYGEN [Concomitant]

REACTIONS (5)
  - APNOEA [None]
  - FLOPPY INFANT [None]
  - MENINGITIS [None]
  - NASOPHARYNGITIS [None]
  - RESPIRATORY SYNCYTIAL VIRUS INFECTION [None]
